FAERS Safety Report 6946873-X (Version None)
Quarter: 2010Q3

REPORT INFORMATION
  Report Type: 
  Country: None (occurrence: None)
  Receive Date: 20100825
  Receipt Date: 20100804
  Transmission Date: 20110219
  Serious: Yes (Hospitalization, Disabling)
  Sender: FDA-Public Use
  Company Number: THQ2010A02272

PATIENT
  Age: 60 Year
  Sex: Female

DRUGS (14)
  1. LANSOPRAZOLE [Suspect]
     Indication: PROPHYLAXIS
     Dates: start: 20090201
  2. HAVRIX [Suspect]
     Indication: PROPHYLAXIS
     Dosage: 1440 ELISA UNIT
     Dates: start: 20090121, end: 20090121
  3. PREDNISOLONE [Suspect]
     Dosage: SEE IMAGE
     Dates: start: 20090301, end: 20090301
  4. PREDNISOLONE [Suspect]
     Dosage: SEE IMAGE
     Dates: start: 20090606, end: 20090601
  5. PREDNISOLONE [Suspect]
     Dosage: SEE IMAGE
     Dates: start: 20090601, end: 20090701
  6. PREDNISOLONE [Suspect]
     Dosage: SEE IMAGE
     Dates: start: 20090701, end: 20090901
  7. PREDNISOLONE [Suspect]
     Dosage: SEE IMAGE
     Dates: start: 20090904, end: 20100101
  8. PREDNISOLONE [Suspect]
     Dosage: SEE IMAGE
     Dates: start: 20090201
  9. PREDNISOLONE [Suspect]
     Dosage: SEE IMAGE
     Dates: start: 20090401
  10. PREDNISOLONE [Suspect]
     Dosage: SEE IMAGE
     Dates: start: 20100421
  11. DIPHTHERIA TOXOID, TETANUS TOXOID, POLIOVIRUS VACCINE [Suspect]
     Indication: PROPHYLAXIS
     Dates: start: 20090121, end: 20090121
  12. BENDROFLUMETHIAZIDE [Concomitant]
  13. PREMIQUE (MEDROXYPROGESTERONE ACETATE, ESTROGENS CONJUGATED) [Concomitant]
  14. OMEPRAZOLE [Concomitant]

REACTIONS (11)
  - AUTOIMMUNE HEPATITIS [None]
  - BLOOD PRESSURE INCREASED [None]
  - CONDITION AGGRAVATED [None]
  - ERYTHEMA MULTIFORME [None]
  - HEPATIC FAILURE [None]
  - IMMUNE SYSTEM DISORDER [None]
  - IMPAIRED WORK ABILITY [None]
  - LIVER DISORDER [None]
  - PAIN OF SKIN [None]
  - SKIN BURNING SENSATION [None]
  - WEIGHT INCREASED [None]
